FAERS Safety Report 20465711 (Version 6)
Quarter: 2023Q2

REPORT INFORMATION
  Report Type: Spontaneous
  Country: DE (occurrence: DE)
  Receive Date: 20220212
  Receipt Date: 20230613
  Transmission Date: 20230722
  Serious: Yes (Hospitalization, Other)
  Sender: FDA-Public Use
  Company Number: DE-NOVARTISPH-NVSC2019DE021605

PATIENT
  Sex: Female

DRUGS (11)
  1. VALSARTAN [Suspect]
     Active Substance: VALSARTAN
     Indication: Hypertension
     Dosage: 1.5 DOSAGE FORM, QD, STOPPED ON JUL 2018 OR MAY 2019, 98 TABLETS PER BOX
     Route: 065
     Dates: start: 201203
  2. VALSARTAN [Suspect]
     Active Substance: VALSARTAN
     Dosage: 1 DOSAGE FORM (160 / 12.5 MG)
     Route: 065
     Dates: start: 20130522
  3. VALSARTAN [Suspect]
     Active Substance: VALSARTAN
     Dosage: 160 MG, QD
     Route: 065
     Dates: start: 201305
  4. VALSARTAN [Suspect]
     Active Substance: VALSARTAN
     Dosage: 1.5 DOSAGE FORM, QD (160 MG, ONE TABLET IN THE MORNING, HALF OF A TABLET IN THE EVENING (1-0-1/2))
     Route: 065
     Dates: start: 201505
  5. VALSARTAN [Suspect]
     Active Substance: VALSARTAN
     Dosage: 1.5 DOSAGE FORM, QD
     Route: 065
     Dates: end: 201905
  6. VALSARTAN [Suspect]
     Active Substance: VALSARTAN
     Dosage: 240 MG, QD (160 MG IN THE MORNING, 80 MG IN THE EVENING)
     Route: 065
  7. ASPIRIN [Concomitant]
     Active Substance: ASPIRIN
     Indication: Product used for unknown indication
     Dosage: UNK
     Route: 065
  8. SIMVASTATIN [Concomitant]
     Active Substance: SIMVASTATIN
     Indication: Product used for unknown indication
     Dosage: UNK
     Route: 065
  9. EUTHYROX [Concomitant]
     Active Substance: LEVOTHYROXINE SODIUM
     Indication: Product used for unknown indication
     Dosage: UNK
     Route: 065
  10. JANUVIA [Concomitant]
     Active Substance: SITAGLIPTIN PHOSPHATE
     Indication: Product used for unknown indication
     Dosage: UNK
     Route: 065
  11. CANDESARTAN CILEXETIL [Concomitant]
     Active Substance: CANDESARTAN CILEXETIL
     Indication: Product used for unknown indication
     Dosage: UNK
     Route: 065

REACTIONS (21)
  - Pneumonia [Recovered/Resolved]
  - Myelodysplastic syndrome [Unknown]
  - Acute leukaemia [Unknown]
  - Dysplasia [Unknown]
  - Cervix carcinoma [Unknown]
  - Diabetes mellitus [Unknown]
  - Cytopenia [Unknown]
  - Anaemia [Unknown]
  - Clonal evolution [Unknown]
  - Mental disorder [Unknown]
  - Emotional distress [Unknown]
  - Sleep disorder [Unknown]
  - Disturbance in attention [Unknown]
  - Pyrexia [Unknown]
  - Spinal pain [Unknown]
  - Neuralgia [Unknown]
  - Dizziness [Unknown]
  - Nausea [Unknown]
  - Fatigue [Unknown]
  - Asthenia [Unknown]
  - Myalgia [Unknown]

NARRATIVE: CASE EVENT DATE: 20181101
